FAERS Safety Report 6298409-7 (Version None)
Quarter: 2009Q3

REPORT INFORMATION
  Report Type: 
  Country: None (occurrence: None)
  Receive Date: 20090805
  Receipt Date: 20090706
  Transmission Date: 20100115
  Serious: Yes (Life-Threatening)
  Sender: FDA-Public Use
  Company Number: DE-WYE-H10456209

PATIENT
  Sex: Male

DRUGS (6)
  1. PANTOZOL [Suspect]
     Dosage: OVERDOSE AMOUNT 22 TABLETS (20 MG EACH)
     Route: 048
  2. FLUNITRAZEPAM [Suspect]
     Dosage: OVERDOSE AMOUNT UNKNOWN
  3. IBUPROFEN [Suspect]
     Dosage: OVERDOSE AMOUNT UNKNOWN
  4. METAMIZOLE [Suspect]
     Dosage: OVERDOSE AMOUNT UNKNOWN
  5. VENLAFAXINE HYDROCHLORIDE [Suspect]
     Dosage: OVERDOSE AMOUNT UNKNOWN
  6. QUETIAPINE FUMARATE [Suspect]
     Dosage: OVERDOSE AMOUNT UNKNOWN

REACTIONS (4)
  - COMA [None]
  - INTENTIONAL OVERDOSE [None]
  - MULTIPLE DRUG OVERDOSE INTENTIONAL [None]
  - SUICIDE ATTEMPT [None]
